FAERS Safety Report 7793872-4 (Version None)
Quarter: 2011Q4

REPORT INFORMATION
  Report Type: 
  Country: None (occurrence: None)
  Receive Date: 20111004
  Receipt Date: 20110926
  Transmission Date: 20120403
  Serious: Yes (Hospitalization)
  Sender: FDA-Public Use
  Company Number: US-BIOGENIDEC-2011BI030078

PATIENT
  Age: 54 Year
  Sex: Male

DRUGS (2)
  1. AVONEX [Suspect]
     Indication: MULTIPLE SCLEROSIS
     Route: 030
     Dates: start: 20070222
  2. AVONEX [Suspect]
     Route: 030
     Dates: start: 19990601, end: 20060804

REACTIONS (1)
  - AORTIC ANEURYSM [None]
